FAERS Safety Report 9034842 (Version 1)
Quarter: 2013Q1

REPORT INFORMATION
  Report Type: Spontaneous
  Country: CH (occurrence: None)
  Receive Date: 20130115
  Receipt Date: 20130115
  Transmission Date: 20140127
  Serious: Yes (Hospitalization)
  Sender: FDA-Public Use
  Company Number: DSA_61728_2013

PATIENT
  Age: 39 Year
  Sex: Female

DRUGS (2)
  1. VENLAFAXINE  (VENLAFAXINE) [Suspect]
     Indication: DEPRESSION
     Dates: start: 2008, end: 2009
  2. MIZOLASTINE [Concomitant]

REACTIONS (5)
  - Conjunctivitis allergic [None]
  - Hepatitis cholestatic [None]
  - Acute hepatic failure [None]
  - Hepatic necrosis [None]
  - Drug-induced liver injury [None]
